FAERS Safety Report 15736517 (Version 1)
Quarter: 2018Q4

REPORT INFORMATION
  Report Type: Spontaneous
  Country: CA (occurrence: CA)
  Receive Date: 20181218
  Receipt Date: 20181218
  Transmission Date: 20190205
  Serious: Yes (Other)
  Sender: FDA-Public Use
  Company Number: CA-PFIZER INC-2018510238

PATIENT
  Age: 68 Year
  Sex: Female

DRUGS (10)
  1. FERROUS GLUCONATE [Concomitant]
     Active Substance: FERROUS GLUCONATE
     Dosage: UNK
  2. VITAMIN B12 [COBAMAMIDE] [Concomitant]
     Dosage: UNK
  3. AMITRIPTYLINE [Concomitant]
     Active Substance: AMITRIPTYLINE
     Dosage: UNK
  4. METHYLPREDNISOLONE SODIUM SUCCINATE. [Suspect]
     Active Substance: METHYLPREDNISOLONE SODIUM SUCCINATE
     Dosage: 20 MG, Q8 HOURS
     Route: 042
  5. VITAMIN K NOS [Concomitant]
     Active Substance: DIETARY SUPPLEMENT\ MENAQUINONE 6\PHYTONADIONE
     Dosage: UNK
  6. CALCIUM [Concomitant]
     Active Substance: CALCIUM
     Dosage: UNK
  7. PANTOPRAZOLE [Concomitant]
     Active Substance: PANTOPRAZOLE
     Dosage: UNK
  8. PREDNISONE. [Concomitant]
     Active Substance: PREDNISONE
     Dosage: 60 MG, DAILY
     Route: 048
  9. PREDNISONE. [Concomitant]
     Active Substance: PREDNISONE
     Dosage: UNK
  10. PREDNISONE. [Concomitant]
     Active Substance: PREDNISONE
     Dosage: TAPERING 5 MG, DAILY

REACTIONS (22)
  - Haematochezia [Not Recovered/Not Resolved]
  - Blood chloride decreased [Unknown]
  - Blood urine present [Unknown]
  - International normalised ratio increased [Unknown]
  - Drug ineffective [Not Recovered/Not Resolved]
  - Blood sodium decreased [Unknown]
  - Blood glucose increased [Unknown]
  - Haemoglobin decreased [Unknown]
  - Venous oxygen partial pressure abnormal [Unknown]
  - Pallor [Unknown]
  - Blood potassium decreased [Unknown]
  - Blood ketone body [Unknown]
  - Blood urea decreased [Unknown]
  - Venous oxygen saturation abnormal [Unknown]
  - Carbon dioxide abnormal [Unknown]
  - Blood albumin decreased [Unknown]
  - Aspartate aminotransferase decreased [Unknown]
  - Haematocrit decreased [Unknown]
  - Platelet count abnormal [Unknown]
  - White blood cell disorder [Unknown]
  - Red blood cell count abnormal [Unknown]
  - Blood pH increased [Unknown]
